FAERS Safety Report 9331072 (Version 1)
Quarter: 2013Q2

REPORT INFORMATION
  Report Type: Spontaneous
  Country: US (occurrence: US)
  Receive Date: 20130605
  Receipt Date: 20130605
  Transmission Date: 20140414
  Serious: Yes (Death, Life-Threatening, Hospitalization)
  Sender: FDA-Public Use
  Company Number: US-BRISTOL-MYERS SQUIBB COMPANY-18971135

PATIENT
  Age: 41 Year
  Sex: Male
  Weight: 122.45 kg

DRUGS (2)
  1. COUMADIN [Suspect]
  2. AMIODARONE [Concomitant]

REACTIONS (3)
  - Aortic dissection [Fatal]
  - Renal haemorrhage [Unknown]
  - Renal necrosis [Unknown]
